FAERS Safety Report 15506227 (Version 2)
Quarter: 2018Q4

REPORT INFORMATION
  Report Type: Report from Study
  Country: US (occurrence: US)
  Receive Date: 20181016
  Receipt Date: 20181218
  Transmission Date: 20190205
  Serious: No
  Sender: FDA-Public Use
  Company Number: PHHY2018US126556

PATIENT
  Age: 53 Year
  Sex: Female
  Weight: 97.51 kg

DRUGS (2)
  1. MACROBID [Suspect]
     Active Substance: NITROFURANTOIN\NITROFURANTOIN MONOHYDRATE
     Indication: URINARY TRACT INFECTION
     Route: 065
  2. COSENTYX [Suspect]
     Active Substance: SECUKINUMAB
     Indication: PSORIASIS
     Dosage: 300 MG, QMO
     Route: 058
     Dates: start: 20170511

REACTIONS (7)
  - Urinary tract infection [Unknown]
  - Abdominal pain upper [Unknown]
  - Fall [Unknown]
  - Malaise [Not Recovered/Not Resolved]
  - Contusion [Unknown]
  - Nasopharyngitis [Unknown]
  - Abdominal distension [Unknown]

NARRATIVE: CASE EVENT DATE: 20180621
